FAERS Safety Report 5772682-3 (Version None)
Quarter: 2008Q2

REPORT INFORMATION
  Report Type: 
  Country: None (occurrence: None)
  Receive Date: 20080613
  Receipt Date: 20080612
  Transmission Date: 20081010
  Serious: Yes (Death, Life-Threatening)
  Sender: FDA-Public Use
  Company Number: FR-BOEHRINGER INGELHEIM GMBH, GERMANY-2008-FF-00456FF

PATIENT
  Sex: Male

DRUGS (14)
  1. CATAPRES [Suspect]
     Dates: start: 20080528
  2. XYLOCAINE [Suspect]
     Dates: start: 20080528
  3. NAROPEINE [Suspect]
     Dates: start: 20080528
  4. SEVOFLURANE [Suspect]
     Dosage: ONE PUFF
     Route: 055
     Dates: start: 20080528
  5. INSULIN [Concomitant]
  6. LOXEN [Concomitant]
  7. TRIATEC [Concomitant]
  8. TAHOR [Concomitant]
  9. ASPEGIC 1000 [Concomitant]
  10. TIORFAN [Concomitant]
  11. CREON [Concomitant]
  12. TARDYFERON [Concomitant]
  13. ARANESP [Concomitant]
  14. CALCIDIA [Concomitant]

REACTIONS (2)
  - BRADYCARDIA [None]
  - CARDIAC ARREST [None]
